FAERS Safety Report 14857547 (Version 2)
Quarter: 2019Q1

REPORT INFORMATION
  Report Type: Spontaneous
  Country: US (occurrence: US)
  Receive Date: 20180508
  Receipt Date: 20190226
  Transmission Date: 20190417
  Serious: Yes (Other)
  Sender: FDA-Public Use
  Company Number: US-RADIUS HEALTH INC.-2018US000272

PATIENT
  Age: 61 Year
  Sex: Female
  Weight: 54 kg

DRUGS (1)
  1. TYMLOS [Suspect]
     Active Substance: ABALOPARATIDE
     Indication: OSTEOPOROSIS POSTMENOPAUSAL
     Dosage: 80 MCG, DAILY
     Route: 058
     Dates: start: 20180221

REACTIONS (12)
  - Blood iron abnormal [Unknown]
  - Feeling abnormal [Recovered/Resolved]
  - Dyspnoea [Unknown]
  - Transfusion [Unknown]
  - Heart rate increased [Unknown]
  - Headache [Recovering/Resolving]
  - Palpitations [Unknown]
  - Fatigue [Unknown]
  - Asthenia [Unknown]
  - Vertigo [Recovering/Resolving]
  - Nausea [Recovered/Resolved]
  - Dizziness [Recovered/Resolved]

NARRATIVE: CASE EVENT DATE: 20180225
